FAERS Safety Report 9563559 (Version 1)
Quarter: 2013Q1

REPORT INFORMATION
  Report Type: Spontaneous
  Country: US (occurrence: None)
  Receive Date: 20121227
  Receipt Date: 20121227
  Transmission Date: 20140127
  Serious: Yes (Other)
  Sender: FDA-Public Use
  Company Number: PHEH2012US001254

PATIENT
  Age: 63 Year
  Sex: Female
  Weight: 51.7 kg

DRUGS (1)
  1. EXJADE [Suspect]
     Indication: BLOOD IRON INCREASED
     Route: 048
     Dates: start: 20111010

REACTIONS (1)
  - Liver function test abnormal [None]
